FAERS Safety Report 24829481 (Version 1)
Quarter: 2025Q1

REPORT INFORMATION
  Report Type: Report from Study
  Country: US (occurrence: US)
  Receive Date: 20250110
  Receipt Date: 20250110
  Transmission Date: 20250409
  Serious: Yes (Death)
  Sender: RECORDATI
  Company Number: US-RECORDATI RARE DISEASE INC.-2025000005

PATIENT

DRUGS (32)
  1. ISTURISA [Suspect]
     Active Substance: OSILODROSTAT PHOSPHATE
     Indication: Cushing^s syndrome
     Dosage: 0.5 MG, QD
     Route: 048
     Dates: start: 20240415, end: 20240415
  2. ISTURISA [Suspect]
     Active Substance: OSILODROSTAT PHOSPHATE
     Dosage: 0.5 MG, BID
     Route: 048
     Dates: start: 20240416, end: 20240416
  3. ISTURISA [Suspect]
     Active Substance: OSILODROSTAT PHOSPHATE
     Dosage: 0.5 MG, QD
     Route: 048
     Dates: start: 2024, end: 20240605
  4. ISTURISA [Suspect]
     Active Substance: OSILODROSTAT PHOSPHATE
     Dosage: 1.5 MG, BID
     Route: 048
     Dates: start: 20240620, end: 20240620
  5. ISTURISA [Suspect]
     Active Substance: OSILODROSTAT PHOSPHATE
     Dosage: 1 MG, BID
     Route: 048
     Dates: start: 2024, end: 2024
  6. ISTURISA [Suspect]
     Active Substance: OSILODROSTAT PHOSPHATE
     Dosage: 1 MG, QD
     Route: 048
     Dates: start: 2024, end: 20240814
  7. ISTURISA [Suspect]
     Active Substance: OSILODROSTAT PHOSPHATE
     Dosage: 0.5 MG, BID
     Route: 048
     Dates: start: 20240815, end: 20240815
  8. ISTURISA [Suspect]
     Active Substance: OSILODROSTAT PHOSPHATE
     Dosage: 1 MG, QD
     Route: 048
     Dates: start: 2024, end: 20240920
  9. ISTURISA [Suspect]
     Active Substance: OSILODROSTAT PHOSPHATE
     Dosage: 1 MG, QD
     Route: 048
     Dates: start: 2024, end: 20241003
  10. ISTURISA [Suspect]
     Active Substance: OSILODROSTAT PHOSPHATE
     Dosage: 1.5 MG, QD
     Route: 048
     Dates: start: 2024, end: 20241217
  11. ISTURISA [Suspect]
     Active Substance: OSILODROSTAT PHOSPHATE
     Dosage: 1 MG, QD (QPM)
     Route: 048
  12. OMEPRAZOLE [Concomitant]
     Active Substance: OMEPRAZOLE
     Indication: Product used for unknown indication
     Dosage: 40 MG, QD (CAPSULE DELAYED RELEASE)
     Route: 048
     Dates: start: 20110506
  13. AMITRIPTYLINE HYDROCHLORIDE [Concomitant]
     Active Substance: AMITRIPTYLINE HYDROCHLORIDE
     Indication: Product used for unknown indication
     Dosage: 15 MG, BID (ORAL TABLET 10 MG)
     Route: 048
     Dates: start: 20160203
  14. PREGABALIN [Concomitant]
     Active Substance: PREGABALIN
     Indication: Product used for unknown indication
     Dosage: 150 MG, QD (AT BED TIME) (ORAL CAPSULE 150 MG)
     Route: 048
     Dates: start: 20160203
  15. AMLODIPINE BESYLATE [Concomitant]
     Active Substance: AMLODIPINE BESYLATE
     Indication: Product used for unknown indication
     Dosage: 5 MG, QD (ORAL TABLET 5 MG)
     Route: 048
     Dates: start: 20170607
  16. ATORVASTATIN CALCIUM [Concomitant]
     Active Substance: ATORVASTATIN CALCIUM
     Indication: Product used for unknown indication
     Dosage: 80 MG, QD (ORAL TABLET 80)
     Route: 048
     Dates: start: 20170809
  17. EZETIMIBE [Concomitant]
     Active Substance: EZETIMIBE
     Indication: Product used for unknown indication
     Dosage: 10 MG, QD (ORAL TABLET 10 MG)
     Route: 048
     Dates: start: 20170910
  18. ICOSAPENT ETHYL [Concomitant]
     Active Substance: ICOSAPENT ETHYL
     Indication: Product used for unknown indication
     Dosage: 2 GRAM, BID (ORAL CAPSULE 1 GM)
     Route: 048
     Dates: start: 20181011
  19. HERBALS\TURMERIC [Concomitant]
     Active Substance: HERBALS\TURMERIC
     Indication: Product used for unknown indication
     Dosage: 1000 MG, QD (ORAL CAPSULE 500)
     Route: 048
     Dates: start: 20200405
  20. VITAMIN D3 [Concomitant]
     Active Substance: CHOLECALCIFEROL
     Indication: Product used for unknown indication
     Dosage: 125 MICROGRAM, QD (ORAL CAPSULE 125 MCG (50))
     Route: 048
     Dates: start: 20200405
  21. LOSARTAN POTASSIUM [Concomitant]
     Active Substance: LOSARTAN POTASSIUM
     Indication: Product used for unknown indication
     Dosage: 100 MG, QD (ORAL TABLET 100)
     Route: 048
     Dates: start: 20210102
  22. NADOLOL [Concomitant]
     Active Substance: NADOLOL
     Indication: Product used for unknown indication
     Dosage: 40 MG, QD (ORAL TABLET 40 MG)
     Route: 048
     Dates: start: 20210102
  23. XIIDRA [Concomitant]
     Active Substance: LIFITEGRAST
     Indication: Product used for unknown indication
     Dosage: 5 PERCENT, BID (OPHTHALMIC SOLUTION 5%)
     Route: 047
     Dates: start: 20211212
  24. BASAGLAR KWIKPEN [Concomitant]
     Active Substance: INSULIN GLARGINE
     Indication: Product used for unknown indication
     Dosage: 100 UNITS PER MILLILITER, QD AT BED TIME (QPM) (SUBCUTANEOUS SOLUTION)
     Route: 058
     Dates: start: 20230708
  25. INSULIN LISPRO JUNIOR KWIKPEN [Concomitant]
     Active Substance: INSULIN LISPRO
     Indication: Product used for unknown indication
     Route: 058
     Dates: start: 20230708
  26. MOUNJARO [Concomitant]
     Active Substance: TIRZEPATIDE
     Indication: Product used for unknown indication
     Dosage: 10 MILLIGRAMS PER 0.5 MILLILITER, QW (SUBCUTANEOUS SOLUTION PEN)
     Route: 058
     Dates: start: 20230708, end: 20240729
  27. MOUNJARO [Concomitant]
     Active Substance: TIRZEPATIDE
     Dosage: 12.5 (UNITS NOT REPORTED) , QW (SUBCUTANEOUS SOLUTION PEN)
     Route: 058
     Dates: start: 20240729
  28. JARDIANCE [Concomitant]
     Active Substance: EMPAGLIFLOZIN
     Indication: Product used for unknown indication
     Dosage: 25 MG, QD (ORAL TABLET 25 MG)
     Route: 048
     Dates: start: 20240304
  29. MINERALS\VITAMINS [Concomitant]
     Active Substance: MINERALS\VITAMINS
     Indication: Product used for unknown indication
     Dosage: 1 DOSAGE FORM (TABLET), QD (ORAL TABLET)
     Route: 048
     Dates: start: 20240729
  30. CETIRIZINE HCL [Concomitant]
     Active Substance: CETIRIZINE HYDROCHLORIDE
     Indication: Product used for unknown indication
     Dosage: 5 MG, BID (ORAL TABLET 5 MG)
     Route: 048
     Dates: start: 20240729
  31. CINNAMON [Concomitant]
     Active Substance: CINNAMON
     Indication: Product used for unknown indication
     Dosage: 500 MG, QD (ORAL TABLET 500 MG)
     Route: 048
     Dates: start: 20240801
  32. VITAMIN D [Concomitant]
     Active Substance: VITAMIN D NOS
     Indication: Product used for unknown indication
     Dosage: 125 MICROGRAM, QD (ORAL CAPSULE 125 MCG (500))
     Route: 048
     Dates: start: 20240801

REACTIONS (2)
  - Death [Fatal]
  - Off label use [Recovered/Resolved]

NARRATIVE: CASE EVENT DATE: 20250101
